FAERS Safety Report 4780412-7 (Version None)
Quarter: 2005Q3

REPORT INFORMATION
  Report Type: 
  Country: None (occurrence: None)
  Receive Date: 20050927
  Receipt Date: 20050915
  Transmission Date: 20060218
  Serious: Yes (Hospitalization)
  Sender: FDA-Public Use
  Company Number: CH-BRISTOL-MYERS SQUIBB COMPANY-13113469

PATIENT
  Age: 77 Year
  Sex: Male

DRUGS (7)
  1. MAXIPIME [Suspect]
     Dates: start: 20050512, end: 20050523
  2. GLUCOPHAGE [Suspect]
     Route: 048
     Dates: start: 20050706, end: 20050101
  3. VANCOCIN HCL [Suspect]
     Dates: start: 20050512, end: 20050523
  4. CIPROXIN [Suspect]
     Route: 048
     Dates: start: 20050523, end: 20050701
  5. DALACIN [Suspect]
     Route: 048
     Dates: start: 20050523, end: 20050701
  6. PLAVIX [Concomitant]
     Route: 048
  7. SORTIS [Concomitant]
     Route: 048

REACTIONS (2)
  - METABOLIC ACIDOSIS [None]
  - RENAL FAILURE CHRONIC [None]
